FAERS Safety Report 5645596-7 (Version None)
Quarter: 2008Q1

REPORT INFORMATION
  Report Type: 
  Country: None (occurrence: None)
  Receive Date: 20080229
  Receipt Date: 20080221
  Transmission Date: 20080703
  Serious: Yes (Hospitalization)
  Sender: FDA-Public Use
  Company Number: DE-BRISTOL-MYERS SQUIBB COMPANY-14095194

PATIENT
  Age: 72 Year
  Sex: Male

DRUGS (5)
  1. CETUXIMAB [Suspect]
     Indication: NON-SMALL CELL LUNG CANCER
     Dosage: STRENGHT 2MG/ML
     Route: 040
     Dates: start: 20071206
  2. DOCETAXEL [Suspect]
     Indication: NON-SMALL CELL LUNG CANCER
     Route: 042
     Dates: start: 20080126
  3. GEMCITABINE [Suspect]
     Indication: NON-SMALL CELL LUNG CANCER
     Route: 042
     Dates: start: 20071206
  4. NOVAMINSULFON [Concomitant]
     Dosage: DOSAGE FORM = GTT; 60GTT/DAY; 20GTT 3 IN 1 DAY
     Dates: start: 20080110
  5. XIMOVAN [Concomitant]
     Dates: start: 20080125

REACTIONS (1)
  - HAEMOPTYSIS [None]
